FAERS Safety Report 7514011-0 (Version None)
Quarter: 2011Q2

REPORT INFORMATION
  Report Type: 
  Country: None (occurrence: None)
  Receive Date: 20110531
  Receipt Date: 20110519
  Transmission Date: 20111010
  Serious: Yes (Hospitalization)
  Sender: FDA-Public Use
  Company Number: RU-UCBSA-012066

PATIENT
  Sex: Female
  Weight: 58 kg

DRUGS (12)
  1. DICLOFENAC SODIUM [Concomitant]
     Dates: start: 20100517
  2. METHOTREXATE [Concomitant]
     Indication: ARTHRITIS
     Dates: start: 20021201
  3. DICLOFENAC SODIUM [Concomitant]
     Indication: ARTHRITIS
     Route: 048
     Dates: start: 20090920
  4. CIMZIA [Suspect]
     Indication: RHEUMATOID ARTHRITIS
     Route: 058
     Dates: start: 20051214, end: 20080206
  5. METHOTREXATE [Concomitant]
     Route: 048
     Dates: start: 20080306, end: 20100517
  6. METHOTREXATE [Concomitant]
     Indication: RHEUMATOID ARTHRITIS
     Dates: start: 20021201
  7. METHOTREXATE [Concomitant]
     Route: 048
     Dates: start: 20100601
  8. METHOTREXATE [Concomitant]
     Route: 048
     Dates: start: 20100601
  9. ENALAPRIL [Concomitant]
     Indication: ESSENTIAL HYPERTENSION
     Route: 048
     Dates: start: 20050601
  10. CIMZIA [Suspect]
     Route: 058
     Dates: start: 20080220, end: 20100513
  11. METHOTREXATE [Concomitant]
     Route: 048
     Dates: start: 20080306, end: 20100517
  12. FOLIC ACID [Concomitant]
     Indication: SUPPLEMENTATION THERAPY
     Route: 048
     Dates: start: 20021201

REACTIONS (1)
  - DISSEMINATED TUBERCULOSIS [None]
